FAERS Safety Report 9275581 (Version 2)
Quarter: 2013Q4

REPORT INFORMATION
  Report Type: Spontaneous
  Country: GB (occurrence: GB)
  Receive Date: 20130507
  Receipt Date: 20131104
  Transmission Date: 20140711
  Serious: Yes (Other)
  Sender: FDA-Public Use
  Company Number: GB-AMGEN-GBRSP2013030461

PATIENT
  Age: 74 Year
  Sex: Male
  Weight: 70.3 kg

DRUGS (5)
  1. CINACALCET HCL [Suspect]
     Indication: PARATHYROID TUMOUR BENIGN
     Dosage: 300 MG, BID
     Route: 048
     Dates: start: 20121218, end: 20130313
  2. ALENDRONATE [Concomitant]
  3. DONEPEZIL [Concomitant]
  4. MONTELUKAST [Concomitant]
  5. WARFARIN SODIUM [Concomitant]

REACTIONS (4)
  - Bradycardia [Unknown]
  - Dizziness [Unknown]
  - Fall [Unknown]
  - Balance disorder [Unknown]
